FAERS Safety Report 5512421-4 (Version None)
Quarter: 2007Q4

REPORT INFORMATION
  Report Type: 
  Country: None (occurrence: None)
  Receive Date: 20071112
  Receipt Date: 20061030
  Transmission Date: 20080405
  Serious: No
  Sender: FDA-Public Use
  Company Number: A0624038A

PATIENT
  Age: 37 Year
  Sex: Male
  Weight: 106.8 kg

DRUGS (3)
  1. AVANDAMET [Suspect]
     Route: 048
     Dates: start: 20061013, end: 20061014
  2. LISINOPRIL [Concomitant]
  3. METHADONE HCL [Concomitant]

REACTIONS (1)
  - RASH PRURITIC [None]
